FAERS Safety Report 7655961-4 (Version None)
Quarter: 2011Q3

REPORT INFORMATION
  Report Type: 
  Country: None (occurrence: None)
  Receive Date: 20110804
  Receipt Date: 20110722
  Transmission Date: 20111222
  Serious: Yes (Hospitalization)
  Sender: FDA-Public Use
  Company Number: CA-UCBSA-004233

PATIENT
  Sex: Female
  Weight: 125 kg

DRUGS (7)
  1. HYDROCHLOROTHIAZIDE [Concomitant]
     Indication: HYPERTENSION
  2. CIMZIA [Suspect]
     Indication: RHEUMATOID ARTHRITIS
     Route: 058
     Dates: start: 20091201
  3. PREDNISONE [Concomitant]
     Indication: RHEUMATOID ARTHRITIS
     Dosage: DAILY
     Route: 048
     Dates: start: 20050101
  4. SULFASALAZINE [Suspect]
     Indication: RHEUMATOID ARTHRITIS
     Dosage: DAILY
     Route: 048
     Dates: start: 20080301, end: 20091201
  5. AMITRIPTYLINE HCL [Concomitant]
     Indication: INSOMNIA
  6. ACTONEL [Concomitant]
     Indication: OSTEOPOROSIS
  7. OXYCODONE HCL [Concomitant]
     Indication: PAIN

REACTIONS (3)
  - PNEUMONIA [None]
  - LIVER FUNCTION TEST ABNORMAL [None]
  - MALAISE [None]
